FAERS Safety Report 4779947-2 (Version None)
Quarter: 2005Q3

REPORT INFORMATION
  Report Type: 
  Country: None (occurrence: None)
  Receive Date: 20050927
  Receipt Date: 20050922
  Transmission Date: 20060218
  Serious: Yes (Disabling, Other)
  Sender: FDA-Public Use
  Company Number: US-GLAXOSMITHKLINE-A0575726A

PATIENT
  Sex: Male

DRUGS (1)
  1. HYCAMTIN [Suspect]
     Dosage: 4MGM2 WEEKLY
     Route: 042
     Dates: start: 20050401, end: 20050401

REACTIONS (1)
  - DEAFNESS [None]
